FAERS Safety Report 7860252 (Version 5)
Quarter: 2018Q3

REPORT INFORMATION
  Report Type: Spontaneous
  Country: JP (occurrence: JP)
  Receive Date: 20110317
  Receipt Date: 20180927
  Transmission Date: 20181010
  Serious: Yes (Hospitalization, Other)
  Sender: FDA-Public Use
  Company Number: PHHY2011JP18638

PATIENT
  Age: 48 Year
  Sex: Female

DRUGS (4)
  1. ZOLADEX [Concomitant]
     Active Substance: GOSERELIN ACETATE
     Indication: BREAST CANCER
     Route: 042
  2. HERCEPTIN [Concomitant]
     Active Substance: TRASTUZUMAB
     Indication: BREAST CANCER
     Route: 042
  3. ZOMETA [Suspect]
     Active Substance: ZOLEDRONIC ACID
     Indication: METASTASES TO BONE
     Dosage: 4 MG, DAILY
     Route: 041
     Dates: start: 200704, end: 201102
  4. AREDIA [Suspect]
     Active Substance: PAMIDRONATE DISODIUM
     Indication: METASTASES TO BONE
     Dosage: 90 MG, DAILY
     Route: 041
     Dates: start: 2005, end: 200704

REACTIONS (4)
  - Bone pain [Recovered/Resolved]
  - Fall [Unknown]
  - Injury [Unknown]
  - Femur fracture [Unknown]

NARRATIVE: CASE EVENT DATE: 201102
